FAERS Safety Report 7032729-3 (Version None)
Quarter: 2010Q4

REPORT INFORMATION
  Report Type: 
  Country: None (occurrence: None)
  Receive Date: 20101007
  Receipt Date: 20101004
  Transmission Date: 20110411
  Serious: Yes (Hospitalization)
  Sender: FDA-Public Use
  Company Number: PE-ROCHE-730893

PATIENT
  Sex: Male
  Weight: 78 kg

DRUGS (1)
  1. AVASTIN [Suspect]
     Route: 042
     Dates: start: 20100503

REACTIONS (1)
  - HEMIPLEGIA [None]
